FAERS Safety Report 5202350-8 (Version None)
Quarter: 2006Q4

REPORT INFORMATION
  Report Type: 
  Country: None (occurrence: None)
  Receive Date: 20061012
  Receipt Date: 20060720
  Transmission Date: 20070319
  Serious: Yes (Hospitalization)
  Sender: FDA-Public Use
  Company Number: 2005S1000016

PATIENT
  Age: 63 Year
  Sex: Female
  Weight: 79.1 kg

DRUGS (15)
  1. CUBICIN [Suspect]
     Indication: OSTEOMYELITIS
     Dosage: 475 MG; Q24H; IV
     Route: 042
     Dates: start: 20050126
  2. CUBICIN [Suspect]
     Indication: STAPHYLOCOCCAL INFECTION
     Dosage: 475 MG; Q24H; IV
     Route: 042
     Dates: start: 20050126
  3. RIFAMPIN [Concomitant]
  4. DIAVAN [Concomitant]
  5. PEPCID [Concomitant]
  6. COLACE [Concomitant]
  7. PAXIL [Concomitant]
  8. SOMA [Concomitant]
  9. VICODIN [Concomitant]
  10. FOLIC ACID [Concomitant]
  11. ALLEGRA [Concomitant]
  12. THYROID TAB [Concomitant]
  13. VOLTAREN [Concomitant]
  14. DURAGESIC-100 [Concomitant]
  15. ANCEF [Concomitant]

REACTIONS (7)
  - BLOOD CREATINE PHOSPHOKINASE INCREASED [None]
  - COUGH [None]
  - EOSINOPHILIA [None]
  - HYPERSENSITIVITY [None]
  - HYPOXIA [None]
  - LUNG INFILTRATION [None]
  - PULMONARY EOSINOPHILIA [None]
